FAERS Safety Report 4848610-1 (Version None)
Quarter: 2005Q4

REPORT INFORMATION
  Report Type: 
  Country: None (occurrence: None)
  Receive Date: 20051206
  Receipt Date: 20050211
  Transmission Date: 20060501
  Serious: Yes (Other)
  Sender: FDA-Public Use
  Company Number: 2005002044

PATIENT
  Age: 20 Year
  Sex: Female

DRUGS (6)
  1. DEPO-PROVERA [Suspect]
     Indication: ILL-DEFINED DISORDER
     Dosage: 150 MG (150 MG, EVERY 12 WEEKS), INTRAMUSCULAR
     Route: 030
  2. CARBAMAZEPINE [Suspect]
     Indication: EPILEPSY
     Dosage: 200 MG (200 MG, TWICE A DAY), ORAL
     Route: 048
     Dates: start: 19970401
  3. OXYBUTYNIN CHLORIDE [Suspect]
     Indication: ENURESIS
     Dosage: 2.5 MG (2.5 MG, NIGHTLY), ORAL
     Route: 048
     Dates: start: 19980301
  4. TERBUTALINE SULFATE [Suspect]
     Indication: ASTHMA
     Dosage: INHALATION
     Route: 055
     Dates: start: 19940801
  5. SYMBICORT TURBOHALER (BUDESONIDE, FORMOTEROL FUMARATE) [Suspect]
     Indication: ASTHMA
     Dosage: INHALATION
     Route: 055
     Dates: start: 20010901
  6. TEGRETOL [Suspect]
     Indication: EPILEPSY
     Dosage: 400 MG, (400 MG, TWICE A DAY), ORAL
     Route: 048
     Dates: start: 19980201

REACTIONS (2)
  - BLOOD PRESSURE INCREASED [None]
  - DRUG INTERACTION [None]
